FAERS Safety Report 14711442 (Version 1)
Quarter: 2018Q2

REPORT INFORMATION
  Report Type: Spontaneous
  Country: US (occurrence: US)
  Receive Date: 20180403
  Receipt Date: 20180403
  Transmission Date: 20180711
  Serious: No
  Sender: FDA-Public Use
  Company Number: US-BAUSCH-BL-2017-022225

PATIENT
  Sex: Female

DRUGS (1)
  1. RENOVA [Suspect]
     Active Substance: TRETINOIN
     Indication: SKIN WRINKLING
     Dosage: 1 APPLICATION TO THE AREA 2 INCHES BELOW BOTH EYES IN THE EVENING DAILY?APPLIED THE PRODUCT EVERY NI
     Route: 061

REACTIONS (1)
  - Abnormal sensation in eye [Unknown]
